FAERS Safety Report 23287500 (Version 6)
Quarter: 2024Q2

REPORT INFORMATION
  Report Type: Report from Study
  Country: US (occurrence: US)
  Receive Date: 20231212
  Receipt Date: 20240626
  Transmission Date: 20240716
  Serious: Yes (Hospitalization)
  Sender: FDA-Public Use
  Company Number: US-INSMED, INC.-2023-04205-US

PATIENT
  Sex: Female

DRUGS (1)
  1. ARIKAYCE [Suspect]
     Active Substance: AMIKACIN
     Indication: Mycobacterial infection
     Dosage: 590 MILLIGRAM, QD
     Route: 055

REACTIONS (4)
  - Hospitalisation [Unknown]
  - Diarrhoea [Not Recovered/Not Resolved]
  - Illness [Not Recovered/Not Resolved]
  - Therapy interrupted [Unknown]
